FAERS Safety Report 19769379 (Version 1)
Quarter: 2021Q3

REPORT INFORMATION
  Report Type: Spontaneous
  Country: US (occurrence: US)
  Receive Date: 20210831
  Receipt Date: 20210831
  Transmission Date: 20211014
  Serious: Yes (Hospitalization)
  Sender: FDA-Public Use
  Company Number: None

PATIENT
  Age: 62 Year
  Sex: Male

DRUGS (2)
  1. OZEMPIC [Suspect]
     Active Substance: SEMAGLUTIDE
     Indication: AORTIC ARTERIOSCLEROSIS
     Dosage: ?          OTHER FREQUENCY:WEEKLY;?
     Route: 058
     Dates: start: 20190919
  2. ENXAPARIN [Concomitant]
     Active Substance: ENOXAPARIN

REACTIONS (3)
  - Memory impairment [None]
  - Product dose omission issue [None]
  - Thrombosis [None]

NARRATIVE: CASE EVENT DATE: 20210830
